FAERS Safety Report 20865576 (Version 1)
Quarter: 2022Q2

REPORT INFORMATION
  Report Type: Spontaneous
  Country: US (occurrence: US)
  Receive Date: 20220524
  Receipt Date: 20220524
  Transmission Date: 20220720
  Serious: No
  Sender: FDA-Public Use
  Company Number: US-AMGEN-USASP2022087925

PATIENT
  Sex: Female

DRUGS (2)
  1. ENBREL [Suspect]
     Active Substance: ETANERCEPT
     Indication: Spinal osteoarthritis
     Dosage: 50 MILLIGRAM, QWK
     Route: 058
     Dates: start: 20200928
  2. PIROXICAM [Concomitant]
     Active Substance: PIROXICAM
     Dosage: 20 MILLIGRAM

REACTIONS (1)
  - Illness [Recovered/Resolved]
